FAERS Safety Report 8162595-4 (Version None)
Quarter: 2012Q1

REPORT INFORMATION
  Report Type: 
  Country: None (occurrence: None)
  Receive Date: 20120224
  Receipt Date: 20120214
  Transmission Date: 20120608
  Serious: Yes (Death)
  Sender: FDA-Public Use
  Company Number: IL-NOVOPROD-258538

PATIENT
  Age: 36 Year
  Sex: Female
  Weight: 70 kg

DRUGS (1)
  1. NOVOSEVEN [Suspect]
     Indication: DISSEMINATED INTRAVASCULAR COAGULATION
     Dosage: 7.2 MG, QD
     Route: 042
     Dates: start: 20061110

REACTIONS (2)
  - HAEMORRHAGE [None]
  - MULTI-ORGAN FAILURE [None]
